FAERS Safety Report 5444414-X (Version None)
Quarter: 2007Q3

REPORT INFORMATION
  Report Type: 
  Country: None (occurrence: None)
  Receive Date: 20070906
  Receipt Date: 20070829
  Transmission Date: 20080115
  Serious: Yes (Hospitalization)
  Sender: FDA-Public Use
  Company Number: PHHO2005JP16837

PATIENT
  Age: 72 Year
  Sex: Male
  Weight: 63 kg

DRUGS (3)
  1. DIOVAN [Suspect]
     Indication: HYPERTENSION
     Dosage: 80 MG, QD
     Dates: start: 20030520, end: 20050415
  2. FRANDOL [Concomitant]
     Indication: CARDIAC FAILURE
     Dosage: 60MG DAILY
     Dates: start: 20010420, end: 20050415
  3. PRAVASTATIN [Concomitant]
     Dosage: 10MG DAILY
     Dates: start: 20010420, end: 20050415

REACTIONS (4)
  - BLOOD CREATININE INCREASED [None]
  - DEHYDRATION [None]
  - RENAL IMPAIRMENT [None]
  - VASCULITIS [None]
